FAERS Safety Report 5494415-0 (Version None)
Quarter: 2007Q4

REPORT INFORMATION
  Report Type: 
  Country: None (occurrence: None)
  Receive Date: 20071024
  Receipt Date: 20071016
  Transmission Date: 20080405
  Serious: Yes (Other)
  Sender: FDA-Public Use
  Company Number: CA-BRISTOL-MYERS SQUIBB COMPANY-13951462

PATIENT
  Age: 44 Year
  Sex: Male

DRUGS (12)
  1. AVALIDE [Suspect]
     Indication: HYPERTENSION
     Dates: start: 20070401
  2. NORVASC [Concomitant]
  3. KRILL OIL [Concomitant]
  4. CELERY OIL [Concomitant]
  5. COENZYME Q10 [Concomitant]
  6. COCONUT OIL [Concomitant]
  7. FLAXSEED [Concomitant]
  8. VITAMIN B COMPLEX + C [Concomitant]
  9. SELENIUM [Concomitant]
  10. CALCIUM [Concomitant]
  11. MAGNESIUM SULFATE [Concomitant]
  12. KELP [Concomitant]

REACTIONS (1)
  - ANGINA PECTORIS [None]
